FAERS Safety Report 26098475 (Version 2)
Quarter: 2025Q4

REPORT INFORMATION
  Report Type: Spontaneous
  Country: US (occurrence: US)
  Receive Date: 20251127
  Receipt Date: 20251205
  Transmission Date: 20260118
  Serious: Yes (Other)
  Sender: ABBVIE
  Company Number: US-ABBVIE-6562661

PATIENT
  Age: 77 Year
  Sex: Female

DRUGS (3)
  1. RESTASIS [Suspect]
     Active Substance: CYCLOSPORINE
     Indication: Product used for unknown indication
     Dosage: PATIENT ROA- OPHTHALMIC
     Route: 065
  2. REFRESH OPTIVE MEGA-3 [Suspect]
     Active Substance: CARBOXYMETHYLCELLULOSE SODIUM\GLYCERIN\POLYSORBATE 80
     Indication: Dry eye
     Dosage: PATIENT ROA- OPHTHALMIC
     Route: 065
  3. MURO 128 [Concomitant]
     Active Substance: SODIUM CHLORIDE
     Indication: Product used for unknown indication

REACTIONS (33)
  - Cataract [Unknown]
  - Meibomian gland dysfunction [Unknown]
  - Aqueous misdirection [Unknown]
  - Precancerous condition [Unknown]
  - Drug ineffective [Unknown]
  - Pain [Unknown]
  - Cholelithiasis [Unknown]
  - Blindness [Unknown]
  - Migraine [Not Recovered/Not Resolved]
  - Pharyngeal disorder [Unknown]
  - Coronary artery occlusion [Unknown]
  - Medical device implantation [Unknown]
  - Iridotomy [Unknown]
  - Nocturia [Unknown]
  - Pancreatic atrophy [Unknown]
  - Constipation [Unknown]
  - Diarrhoea [Unknown]
  - Nephrolithiasis [Unknown]
  - Osteoporosis [Unknown]
  - Osteoarthritis [Unknown]
  - Suicidal ideation [Unknown]
  - Peripheral venous disease [Unknown]
  - Insomnia [Unknown]
  - Halo vision [Not Recovered/Not Resolved]
  - Limb injury [Unknown]
  - Nail injury [Unknown]
  - Wound haemorrhage [Unknown]
  - Knee operation [Unknown]
  - Vision blurred [Not Recovered/Not Resolved]
  - Fatigue [Not Recovered/Not Resolved]
  - Aphasia [Unknown]
  - Loss of personal independence in daily activities [Unknown]
  - Osteopenia [Unknown]

NARRATIVE: CASE EVENT DATE: 20240101
